FAERS Safety Report 21962407 (Version 2)
Quarter: 2024Q1

REPORT INFORMATION
  Report Type: Report from Study
  Country: US (occurrence: US)
  Receive Date: 20230207
  Receipt Date: 20240207
  Transmission Date: 20240409
  Serious: No
  Sender: FDA-Public Use
  Company Number: US-ORG100014127-2022001493

PATIENT
  Age: 37 Year
  Sex: Male

DRUGS (7)
  1. LYSODREN [Suspect]
     Active Substance: MITOTANE
     Indication: Adrenal insufficiency
     Dosage: 2 TABLETS TWICE DAILY
     Route: 048
     Dates: start: 20221220
  2. LYSODREN [Suspect]
     Active Substance: MITOTANE
     Indication: Adrenal insufficiency
     Dosage: 6 TABLETS TWICE DAILY
     Route: 048
  3. ESCITALOPRAM [Concomitant]
     Active Substance: ESCITALOPRAM OXALATE
     Indication: Product used for unknown indication
  4. HYDROCORT TAB 5MG [Concomitant]
     Indication: Product used for unknown indication
  5. ROSUVASTATIN [Concomitant]
     Active Substance: ROSUVASTATIN
     Indication: Product used for unknown indication
  6. FISH OIL CAP 1000MG [Concomitant]
     Indication: Product used for unknown indication
  7. Methylphenid tab 5mg [Concomitant]
     Indication: Product used for unknown indication

REACTIONS (1)
  - Off label use [Unknown]
